FAERS Safety Report 5335162-5 (Version None)
Quarter: 2007Q2

REPORT INFORMATION
  Report Type: 
  Country: None (occurrence: None)
  Receive Date: 20070525
  Receipt Date: 20070523
  Transmission Date: 20071010
  Serious: Yes (Life-Threatening, Hospitalization, Disabling, Other)
  Sender: FDA-Public Use
  Company Number: US-MERCK-0704USA01760

PATIENT
  Age: 16 Year
  Sex: Female
  Weight: 91 kg

DRUGS (6)
  1. SINGULAIR [Suspect]
     Indication: ASTHMA
     Route: 048
     Dates: start: 20070301, end: 20070101
  2. SINGULAIR [Suspect]
     Indication: HYPERSENSITIVITY
     Route: 048
     Dates: start: 20070301, end: 20070101
  3. [THERAPY UNSPECIFIED] [Concomitant]
     Route: 065
  4. ALBUTEROL [Concomitant]
     Indication: ASTHMA
     Dates: start: 20060901
  5. ALBUTEROL [Concomitant]
     Indication: HYPERSENSITIVITY
     Dates: start: 20060901
  6. [THERAPY UNSPECIFIED] [Concomitant]
     Route: 065

REACTIONS (3)
  - GRAND MAL CONVULSION [None]
  - RESPIRATORY ARREST [None]
  - TONGUE BITING [None]
